FAERS Safety Report 5740913-1 (Version None)
Quarter: 2008Q2

REPORT INFORMATION
  Report Type: 
  Country: None (occurrence: None)
  Receive Date: 20080516
  Receipt Date: 20071206
  Transmission Date: 20081010
  Serious: No
  Sender: FDA-Public Use
  Company Number: US-BOEHRINGER INGELHEIM GMBH, GERMANY-2007-BP-11530BP

PATIENT
  Sex: Male
  Weight: 61 kg

DRUGS (14)
  1. MIRAPEX [Suspect]
     Indication: PARKINSON'S DISEASE
     Route: 048
     Dates: start: 19990101, end: 20061001
  2. STALEVO 100 [Concomitant]
     Dates: start: 20040401
  3. RANITIDINE [Concomitant]
     Dates: start: 20030618
  4. SONATA [Concomitant]
     Dates: start: 20040901
  5. HYDROCODONE BITARTRATE [Concomitant]
     Dates: start: 20030916
  6. SEROQUEL [Concomitant]
     Dates: start: 20050401
  7. TRAMADOL HCL [Concomitant]
     Dates: start: 20050901
  8. VIAGRA [Concomitant]
     Dates: start: 20060331
  9. LEVITRA [Concomitant]
     Dates: start: 20060919
  10. AMBIEN [Concomitant]
     Dates: start: 20040126
  11. AMITRIPTYLINE HCL [Concomitant]
     Dates: start: 20021128
  12. FOLTX [Concomitant]
     Dates: start: 20030219
  13. SELEGILINE HCL [Concomitant]
     Dates: start: 20011019
  14. IBUPROFEN TABLETS [Concomitant]

REACTIONS (6)
  - ANXIETY [None]
  - DEPRESSION [None]
  - EMOTIONAL DISTRESS [None]
  - HYPERSEXUALITY [None]
  - PAIN [None]
  - PATHOLOGICAL GAMBLING [None]
